FAERS Safety Report 9913410 (Version 1)
Quarter: 2014Q1

REPORT INFORMATION
  Report Type: Spontaneous
  Country: BR (occurrence: BR)
  Receive Date: 20140220
  Receipt Date: 20140220
  Transmission Date: 20141002
  Serious: Yes (Other)
  Sender: FDA-Public Use
  Company Number: BR-SA-2014SA017987

PATIENT
  Age: 18 Month
  Sex: Male

DRUGS (2)
  1. LANTUS [Suspect]
     Indication: DIABETES MELLITUS
     Route: 058
  2. CLIKSTAR [Concomitant]
     Indication: DEVICE THERAPY

REACTIONS (2)
  - Necrotising fasciitis [Not Recovered/Not Resolved]
  - Off label use [Unknown]
